FAERS Safety Report 10267031 (Version 2)
Quarter: 2014Q3

REPORT INFORMATION
  Report Type: Report from Study
  Country: GB (occurrence: GB)
  Receive Date: 20140630
  Receipt Date: 20140715
  Transmission Date: 20150326
  Serious: Yes (Hospitalization)
  Sender: FDA-Public Use
  Company Number: GB-SHIRE-GB201403445

PATIENT
  Age: 56 Year
  Sex: Female
  Weight: 84.8 kg

DRUGS (7)
  1. MELOXICAM. [Concomitant]
     Active Substance: MELOXICAM
     Indication: PAIN
     Dosage: 7.5 MG, 2X/DAY:BID
     Route: 048
     Dates: start: 19991207
  2. VELAGLUCERASE ALFA [Suspect]
     Active Substance: VELAGLUCERASE ALFA
     Indication: GAUCHER^S DISEASE
     Dosage: UNK (57.14 U/KG), UNKNOWN (BIWEEKLY)
     Route: 041
     Dates: start: 20110602
  3. VELAGLUCERASE ALFA [Suspect]
     Active Substance: VELAGLUCERASE ALFA
     Dosage: UNK (29.48 U/KG), OTHER (BIWEEKLY)
     Route: 041
     Dates: start: 20110308, end: 20110602
  4. HYPERICUM PERFORATUM [Concomitant]
     Active Substance: HYPERICUM PERFORATUM
     Indication: DEPRESSION
     Dosage: 2000 MG, 1X/DAY:QD
     Route: 048
     Dates: start: 20090129
  5. ERGOCALCIFEROL. [Concomitant]
     Active Substance: ERGOCALCIFEROL
     Indication: NUTRITIONAL SUPPLEMENTATION
     Dosage: 10000 IU, 1X/DAY:QD
     Route: 048
     Dates: start: 200608
  6. VELAGLUCERASE ALFA [Suspect]
     Active Substance: VELAGLUCERASE ALFA
     Dosage: UNK (23.86 U/KG), OTHER (BIWEEKLY)
     Route: 041
     Dates: start: 20091112, end: 20110308
  7. OTHER THERAPEUTIC PRODUCTS [Concomitant]
     Active Substance: UNSPECIFIED INGREDIENT
     Indication: EYELID DISORDER
     Dosage: 0.5 %, 4X/DAY:QID
     Route: 061

REACTIONS (2)
  - Escherichia infection [Recovered/Resolved]
  - Urosepsis [Recovered/Resolved]

NARRATIVE: CASE EVENT DATE: 20131122
